FAERS Safety Report 7587531-0 (Version None)
Quarter: 2011Q3

REPORT INFORMATION
  Report Type: 
  Country: None (occurrence: None)
  Receive Date: 20110704
  Receipt Date: 20110620
  Transmission Date: 20111222
  Serious: Yes (Hospitalization, Other)
  Sender: FDA-Public Use
  Company Number: PHHY2011NO54136

PATIENT
  Sex: Male

DRUGS (3)
  1. CLOZAPINE [Suspect]
     Dosage: 100 MG, EVENING
  2. CLOZAPINE [Suspect]
     Indication: SCHIZOPHRENIA, PARANOID TYPE
     Dosage: 25 MG, DAILY
     Route: 048
     Dates: start: 20110509, end: 20110523
  3. CLOZAPINE [Suspect]
     Dosage: 50 MG, MORNING.

REACTIONS (24)
  - DIARRHOEA [None]
  - HEPATIC INFECTION [None]
  - ALANINE AMINOTRANSFERASE INCREASED [None]
  - HAEMOGLOBIN DECREASED [None]
  - SEPSIS [None]
  - GASTROINTESTINAL DISORDER [None]
  - GAMMA-GLUTAMYLTRANSFERASE INCREASED [None]
  - MYOCARDITIS [None]
  - VOMITING [None]
  - ACUTE RESPIRATORY DISTRESS SYNDROME [None]
  - RESPIRATORY FAILURE [None]
  - GENERAL PHYSICAL HEALTH DETERIORATION [None]
  - CYTOMEGALOVIRUS TEST POSITIVE [None]
  - ASPARTATE AMINOTRANSFERASE INCREASED [None]
  - RESPIRATORY TRACT INFECTION [None]
  - C-REACTIVE PROTEIN INCREASED [None]
  - LEUKOCYTOSIS [None]
  - CARDIAC FAILURE [None]
  - DYSPNOEA [None]
  - BLOOD LACTATE DEHYDROGENASE INCREASED [None]
  - PYREXIA [None]
  - WHITE BLOOD CELL COUNT INCREASED [None]
  - EPSTEIN-BARR VIRUS ANTIGEN POSITIVE [None]
  - HEPATIC ENZYME INCREASED [None]
